FAERS Safety Report 8217665-9 (Version None)
Quarter: 2012Q1

REPORT INFORMATION
  Report Type: 
  Country: None (occurrence: None)
  Receive Date: 20120315
  Receipt Date: 20120301
  Transmission Date: 20120608
  Serious: Yes (Hospitalization)
  Sender: FDA-Public Use
  Company Number: 2012000036

PATIENT
  Age: 91 Year
  Sex: Female

DRUGS (6)
  1. EUPHYTOSE (BALLOTA NIGRA EXTRACT, COLA NITIDA POWDER, CRATAEGUS SPP. E [Suspect]
     Indication: PRODUCT USED FOR UNKNOWN INDICATION
     Dosage: 1 DF, QD, ORAL
     Route: 048
     Dates: start: 20111222, end: 20120103
  2. FERROUS SULFATE TAB [Concomitant]
  3. PANTOPRAZOLE [Suspect]
     Indication: PRODUCT USED FOR UNKNOWN INDICATION
     Dosage: 20 MG, QD, ORAL
     Route: 048
     Dates: start: 20111222
  4. CORVASAL (MOLSIDOMINE) [Suspect]
     Indication: PRODUCT USED FOR UNKNOWN INDICATION
     Dosage: 2 MG, QID, ORAL
     Route: 048
     Dates: start: 20080101
  5. MEMANTINE HCL [Suspect]
     Indication: PRODUCT USED FOR UNKNOWN INDICATION
     Dosage: 20 MG, QD, ORAL
     Route: 048
     Dates: start: 20090101
  6. ACEON [Suspect]
     Indication: PRODUCT USED FOR UNKNOWN INDICATION
     Dosage: 4 MG, QD, ORAL
     Route: 048
     Dates: start: 20080101

REACTIONS (2)
  - ABDOMINAL PAIN LOWER [None]
  - PEMPHIGOID [None]
